FAERS Safety Report 8154809-1 (Version None)
Quarter: 2012Q1

REPORT INFORMATION
  Report Type: 
  Country: None (occurrence: None)
  Receive Date: 20120221
  Receipt Date: 20120213
  Transmission Date: 20120608
  Serious: Yes (Hospitalization)
  Sender: FDA-Public Use
  Company Number: PHHY2011JP105273

PATIENT
  Sex: Male

DRUGS (13)
  1. ANTEBATE [Concomitant]
     Indication: DERMATITIS ATOPIC
     Dates: start: 20100215
  2. NEORAL [Suspect]
     Dosage: 175 MG, UNK
     Route: 048
     Dates: start: 20101011, end: 20101213
  3. CLARITIN [Suspect]
     Dosage: 10 MG, UNK
     Route: 048
     Dates: start: 20100215
  4. NEORAL [Suspect]
     Dosage: 175 MG, UNK
     Route: 048
     Dates: start: 20100531, end: 20100621
  5. NEORAL [Suspect]
     Dosage: 175 MG, UNK
     Route: 048
     Dates: start: 20100705, end: 20100927
  6. NEORAL [Suspect]
     Dosage: 175 MG, UNK
     Route: 048
     Dates: start: 20101227, end: 20110101
  7. NEORAL [Suspect]
     Indication: DERMATITIS ATOPIC
     Dosage: 175 MG, UNK
     Route: 048
     Dates: start: 20100215, end: 20100517
  8. FULMETA [Concomitant]
     Indication: DERMATITIS ATOPIC
     Dates: start: 20100215
  9. LIDOMEX [Concomitant]
     Indication: DERMATITIS ATOPIC
     Dates: start: 20100531
  10. HIRUDOID [Concomitant]
     Indication: DERMATITIS ATOPIC
     Dates: start: 20100215
  11. PROTOPIC [Concomitant]
     Indication: DERMATITIS ATOPIC
     Dates: start: 20100215
  12. CLARITIN [Suspect]
     Indication: DERMATITIS ATOPIC
     Dosage: BETWEEN 0 AND 10MG/DAY ONLY AT THE TIME OF NEED
     Route: 048
  13. BETAMETHASONE VALERATE [Concomitant]
     Indication: DERMATITIS ATOPIC
     Dates: start: 20100215

REACTIONS (2)
  - JAUNDICE [None]
  - LIVER DISORDER [None]
